FAERS Safety Report 20152086 (Version 2)
Quarter: 2021Q4

REPORT INFORMATION
  Report Type: Report from Study
  Country: MX (occurrence: MX)
  Receive Date: 20211206
  Receipt Date: 20211215
  Transmission Date: 20220304
  Serious: No
  Sender: FDA-Public Use
  Company Number: MX-UCBSA-2021056050

PATIENT
  Sex: Male
  Weight: 75 kg

DRUGS (1)
  1. ROTIGOTINE [Suspect]
     Active Substance: ROTIGOTINE
     Indication: Parkinson^s disease
     Dosage: 4MG HALF PATCH EV 3 DAYS
     Route: 062

REACTIONS (3)
  - Mood altered [Unknown]
  - Arterial occlusive disease [Unknown]
  - Off label use [Unknown]
